FAERS Safety Report 19231401 (Version 1)
Quarter: 2021Q2

REPORT INFORMATION
  Report Type: Spontaneous
  Country: US (occurrence: US)
  Receive Date: 20210507
  Receipt Date: 20210507
  Transmission Date: 20210717
  Serious: Yes (Other)
  Sender: FDA-Public Use
  Company Number: US-009507513-2105USA001508

PATIENT
  Age: 72 Year
  Sex: Female
  Weight: 110 kg

DRUGS (5)
  1. KEYTRUDA [Suspect]
     Active Substance: PEMBROLIZUMAB
     Indication: ENDOMETRIAL CANCER
     Route: 042
  2. LENVATINIB MESYLATE [Suspect]
     Active Substance: LENVATINIB MESYLATE
     Indication: METASTASES TO LIVER
     Dosage: 12 MILLIGRAM, 1 D
     Route: 048
     Dates: start: 20200321, end: 20200416
  3. LENVATINIB MESYLATE [Suspect]
     Active Substance: LENVATINIB MESYLATE
     Indication: ENDOMETRIAL CANCER METASTATIC
     Dosage: 12 MILLIGRAM, 1 D
     Route: 048
     Dates: start: 20200213, end: 20200302
  4. LENVATINIB MESYLATE [Suspect]
     Active Substance: LENVATINIB MESYLATE
     Dosage: 8 MILLIGRAM, 1D
     Route: 048
     Dates: start: 20201023, end: 202103
  5. LENVATINIB MESYLATE [Suspect]
     Active Substance: LENVATINIB MESYLATE
     Dosage: 8 MILLIGRAM, 1D
     Route: 048
     Dates: start: 20200424, end: 2020

REACTIONS (17)
  - Fatigue [Unknown]
  - Loose tooth [Unknown]
  - Constipation [Recovered/Resolved]
  - Fall [Unknown]
  - Hypertension [Unknown]
  - Inappropriate schedule of product administration [Unknown]
  - Dyspnoea [Unknown]
  - Nausea [Unknown]
  - Dyspnoea [Unknown]
  - Gastroenteritis viral [Unknown]
  - Fractured coccyx [Unknown]
  - Diarrhoea [Recovered/Resolved]
  - Asthenia [Unknown]
  - Rectal haemorrhage [Recovered/Resolved]
  - International normalised ratio abnormal [Unknown]
  - Gastrooesophageal reflux disease [Unknown]
  - Thyroid function test abnormal [Unknown]

NARRATIVE: CASE EVENT DATE: 20200214
